FAERS Safety Report 5225408-6 (Version None)
Quarter: 2006Q4

REPORT INFORMATION
  Report Type: 
  Country: None (occurrence: None)
  Receive Date: 20061201
  Receipt Date: 20060911
  Transmission Date: 20070319
  Serious: Yes (Hospitalization)
  Sender: FDA-Public Use
  Company Number: US200609002684

PATIENT
  Age: 24 Year
  Sex: Female

DRUGS (3)
  1. CYMBALTA [Suspect]
     Indication: ABDOMINAL PAIN
     Dosage: 30 MG, DAILY (1/D),
     Dates: start: 20060401
  2. ANALGESICS [Concomitant]
  3. NEXIUM [Concomitant]

REACTIONS (1)
  - SUICIDE ATTEMPT [None]
